FAERS Safety Report 7463233-6 (Version None)
Quarter: 2011Q2

REPORT INFORMATION
  Report Type: 
  Country: None (occurrence: None)
  Receive Date: 20110428
  Receipt Date: 20110415
  Transmission Date: 20111010
  Serious: Yes (Hospitalization)
  Sender: FDA-Public Use
  Company Number: DSA_45446_2011

PATIENT
  Sex: Male

DRUGS (6)
  1. TEGRETOL [Suspect]
     Indication: PRODUCT USED FOR UNKNOWN INDICATION
     Dosage: (UNSPECIFIED TITRATING DOSE) ; (600 MG QD) ; (400 MG QD)
     Dates: start: 20110326
  2. TEGRETOL [Suspect]
     Indication: PRODUCT USED FOR UNKNOWN INDICATION
     Dosage: (UNSPECIFIED TITRATING DOSE) ; (600 MG QD) ; (400 MG QD)
     Dates: start: 20110316
  3. VALIUM [Concomitant]
  4. ZANIDIP [Concomitant]
  5. WELLBUTRIN SR [Suspect]
     Indication: PRODUCT USED FOR UNKNOWN INDICATION
     Dosage: (450 MG QD ORAL) ; (300 MG QD ORAL)
     Route: 048
  6. COVERSUM COMBI [Concomitant]

REACTIONS (3)
  - DRUG INTERACTION [None]
  - DRUG LEVEL ABOVE THERAPEUTIC [None]
  - ATAXIA [None]
